FAERS Safety Report 12713276 (Version 1)
Quarter: 2016Q3

REPORT INFORMATION
  Report Type: Spontaneous
  Country: US (occurrence: US)
  Receive Date: 20160902
  Receipt Date: 20160902
  Transmission Date: 20161109
  Serious: No
  Sender: FDA-Public Use
  Company Number: US-ASTRAZENECA-2016SE92995

PATIENT
  Age: 23110 Day
  Sex: Male
  Weight: 84.4 kg

DRUGS (7)
  1. NEXIUM 24HR [Suspect]
     Active Substance: ESOMEPRAZOLE MAGNESIUM
     Indication: GASTROOESOPHAGEAL REFLUX DISEASE
     Dosage: 22.3 MG, TWO IN THE MORNING
     Route: 048
     Dates: start: 201608
  2. PRILOSEC [Suspect]
     Active Substance: OMEPRAZOLE MAGNESIUM
     Dosage: DAILY
     Route: 048
  3. METAMUCIL [Suspect]
     Active Substance: PLANTAGO SEED
     Indication: DIVERTICULUM
     Dosage: 2 TO 2.5 LARGE SCOOPS ( TABLESOOPNS ) AT NIGHT IN A FULL GLASS OF WATER
     Route: 065
     Dates: start: 2006
  4. VITAMINS [Concomitant]
     Active Substance: VITAMINS
  5. NEXIUM [Suspect]
     Active Substance: ESOMEPRAZOLE MAGNESIUM
     Dosage: GENERIC UNKNOWN
     Route: 048
  6. DIABETIC MEDICATIONS [Concomitant]
  7. NEXIUM [Suspect]
     Active Substance: ESOMEPRAZOLE MAGNESIUM
     Dosage: 40.0MG UNKNOWN
     Route: 048

REACTIONS (8)
  - Drug ineffective [Not Recovered/Not Resolved]
  - Off label use [Unknown]
  - Abdominal pain [Unknown]
  - Intentional product use issue [Unknown]
  - Diarrhoea [Unknown]
  - Intentional product misuse [Unknown]
  - Counterfeit drug administered [Unknown]
  - Epigastric discomfort [Not Recovered/Not Resolved]

NARRATIVE: CASE EVENT DATE: 20160819
